FAERS Safety Report 16935321 (Version 1)
Quarter: 2019Q4

REPORT INFORMATION
  Report Type: Spontaneous
  Country: US (occurrence: US)
  Receive Date: 20191018
  Receipt Date: 20191018
  Transmission Date: 20200122
  Serious: No
  Sender: FDA-Public Use
  Company Number: US-SA-2019SA285512

PATIENT
  Sex: Male

DRUGS (11)
  1. METOPROLOL SALT NOT SPECIFIED [Suspect]
     Active Substance: METOPROLOL
  2. AMLODIPINE BESYLATE. [Concomitant]
     Active Substance: AMLODIPINE BESYLATE
  3. LISINOPRIL. [Concomitant]
     Active Substance: LISINOPRIL
  4. METOPROLOL SUCCINATE. [Concomitant]
     Active Substance: METOPROLOL SUCCINATE
  5. FAMOTIDINE. [Concomitant]
     Active Substance: FAMOTIDINE
  6. PREDNISONE. [Concomitant]
     Active Substance: PREDNISONE
  7. EPINEPHRINE. [Concomitant]
     Active Substance: EPINEPHRINE
  8. AMOXICILLIN. [Concomitant]
     Active Substance: AMOXICILLIN
  9. DUPIXENT [Suspect]
     Active Substance: DUPILUMAB
     Indication: DERMATITIS ATOPIC
     Dosage: 300 MG, QOW
     Route: 058
     Dates: start: 20190901
  10. TRIAMCINOLONE ACETONIDE. [Concomitant]
     Active Substance: TRIAMCINOLONE ACETONIDE
  11. ALLOPURINOL. [Concomitant]
     Active Substance: ALLOPURINOL

REACTIONS (2)
  - Hypersensitivity [Unknown]
  - Swelling face [Unknown]

NARRATIVE: CASE EVENT DATE: 201909
